FAERS Safety Report 8727243 (Version 4)
Quarter: 2012Q4

REPORT INFORMATION
  Report Type: Report from Study
  Country: DE (occurrence: DE)
  Receive Date: 20120816
  Receipt Date: 20120913
  Transmission Date: 20130627
  Serious: Yes (Hospitalization)
  Sender: FDA-Public Use
  Company Number: DE-PFIZER INC-2012191461

PATIENT
  Age: 70 Year
  Sex: Male
  Weight: 68.8 kg

DRUGS (8)
  1. IRINOTECAN HCL [Suspect]
     Indication: COLORECTAL CANCER METASTATIC
     Dosage: 370 mg, every 2 weeks
     Route: 042
     Dates: start: 20120723
  2. FLUOROURACIL [Suspect]
     Indication: COLORECTAL CANCER METASTATIC
     Dosage: 756 mg, one dose every 2 weeks
     Route: 040
     Dates: start: 20120723
  3. FLUOROURACIL [Suspect]
     Dosage: 4536 mg, every 2 weeks
     Route: 041
     Dates: start: 20120723
  4. BEVACIZUMAB [Suspect]
     Indication: COLORECTAL CANCER METASTATIC
     Dosage: 362 mg, every 2 weeks
     Route: 042
     Dates: start: 20120723
  5. FOLINIC ACID [Suspect]
     Indication: COLORECTAL CANCER METASTATIC
     Dosage: 756 mg, every 2 weeks
     Route: 042
     Dates: start: 20120723
  6. AMLODIPINE [Concomitant]
     Dosage: 5 mg, 1x/day
     Route: 048
  7. NOVALGIN [Concomitant]
     Dosage: 500 mg, as needed
     Route: 048
  8. LACTULOSE [Concomitant]
     Dosage: 20 ml, as needed
     Route: 048

REACTIONS (1)
  - General physical condition abnormal [Recovered/Resolved]
